FAERS Safety Report 24616250 (Version 3)
Quarter: 2024Q4

REPORT INFORMATION
  Report Type: Report from Study
  Country: US (occurrence: US)
  Receive Date: 20241114
  Receipt Date: 20241229
  Transmission Date: 20250114
  Serious: No
  Sender: ROCHE
  Company Number: US-ROCHE-10000130055

PATIENT
  Age: 49 Year
  Sex: Female
  Weight: 96.16 kg

DRUGS (5)
  1. OCREVUS [Suspect]
     Active Substance: OCRELIZUMAB
     Indication: Relapsing multiple sclerosis
     Dosage: 300MG, ON DAY 1 AND DAY 15
     Route: 042
     Dates: start: 20200513
  2. OMEPRAZOLE [Concomitant]
     Active Substance: OMEPRAZOLE
  3. TYLENOL [Concomitant]
     Active Substance: ACETAMINOPHEN
  4. TECFIDERA [Concomitant]
     Active Substance: DIMETHYL FUMARATE
  5. REQUIP [Concomitant]
     Active Substance: ROPINIROLE HYDROCHLORIDE

REACTIONS (5)
  - Lymphadenopathy [Recovered/Resolved]
  - COVID-19 [Recovered/Resolved]
  - Rosacea [Not Recovered/Not Resolved]
  - Psoriasis [Not Recovered/Not Resolved]
  - Fall [Unknown]

NARRATIVE: CASE EVENT DATE: 20240901
